FAERS Safety Report 15460547 (Version 1)
Quarter: 2018Q4

REPORT INFORMATION
  Report Type: Spontaneous
  Country: US (occurrence: US)
  Receive Date: 20181003
  Receipt Date: 20181003
  Transmission Date: 20190204
  Serious: No
  Sender: FDA-Public Use
  Company Number: US-ALKERMES INC.-ALK-2018-005351

PATIENT
  Age: 28 Year
  Sex: Male
  Weight: 65.76 kg

DRUGS (1)
  1. VIVITROL [Suspect]
     Active Substance: NALTREXONE
     Indication: DRUG DEPENDENCE
     Dosage: 380 MG, QMO
     Route: 030
     Dates: start: 201708

REACTIONS (7)
  - Nightmare [Unknown]
  - Weight decreased [Unknown]
  - Anger [Unknown]
  - Middle insomnia [Unknown]
  - Paranoia [Unknown]
  - Nocturnal fear [Unknown]
  - Anxiety [Unknown]

NARRATIVE: CASE EVENT DATE: 2018
